FAERS Safety Report 9736233 (Version 1)
Quarter: 2013Q4

REPORT INFORMATION
  Report Type: Spontaneous
  Country: FR (occurrence: FR)
  Receive Date: 20131206
  Receipt Date: 20131206
  Transmission Date: 20140711
  Serious: Yes (Other)
  Sender: FDA-Public Use
  Company Number: FR-BRISTOL-MYERS SQUIBB COMPANY-19867209

PATIENT
  Sex: Female

DRUGS (1)
  1. ABILIFY TABS 30 MG [Suspect]
     Route: 048

REACTIONS (2)
  - Urinary retention [Unknown]
  - Dysuria [Unknown]
